FAERS Safety Report 4564483-9 (Version None)
Quarter: 2005Q1

REPORT INFORMATION
  Report Type: 
  Country: None (occurrence: None)
  Receive Date: 20050128
  Receipt Date: 20050125
  Transmission Date: 20050727
  Serious: Yes (Hospitalization, Other)
  Sender: FDA-Public Use
  Company Number: FR-BRISTOL-MYERS SQUIBB COMPANY-12837787

PATIENT
  Age: 70 Year
  Sex: Male

DRUGS (1)
  1. VASTEN TABS [Suspect]
     Route: 048
     Dates: end: 20050109

REACTIONS (3)
  - DYSPNOEA [None]
  - HYPERCAPNIA [None]
  - INTERSTITIAL LUNG DISEASE [None]
